FAERS Safety Report 19441064 (Version 1)
Quarter: 2021Q2

REPORT INFORMATION
  Report Type: Spontaneous
  Country: US (occurrence: US)
  Receive Date: 20210617
  Receipt Date: 20210617
  Transmission Date: 20210717
  Serious: Yes (Death)
  Sender: FDA-Public Use
  Company Number: None

PATIENT
  Age: 46 Year
  Sex: Male
  Weight: 104.3 kg

DRUGS (5)
  1. TACROLIMUS 2MG BID [Concomitant]
     Dates: start: 20210609, end: 20210616
  2. PREDNISONE 7.5 MG [Concomitant]
     Dates: end: 20210616
  3. BELATACEPT VIAL 250 MG [Suspect]
     Active Substance: BELATACEPT
     Indication: LUNG TRANSPLANT
     Dosage: ?          OTHER FREQUENCY:DAY 0?DAY 84;?
     Route: 040
     Dates: start: 20200722, end: 20201014
  4. BELATACEPT VIAL 250 MG [Suspect]
     Active Substance: BELATACEPT
     Indication: LUNG TRANSPLANT
     Dosage: ?          OTHER FREQUENCY:Q 28 DAYS;?
     Route: 040
     Dates: start: 20201111, end: 20210523
  5. MYCOPHENOLATE 1000MG BID [Concomitant]
     Dates: end: 20210616

REACTIONS (1)
  - Cardiac arrest [None]

NARRATIVE: CASE EVENT DATE: 20210616
